FAERS Safety Report 8781149 (Version 1)
Quarter: 2012Q4

REPORT INFORMATION
  Report Type: 
  Country: IT (occurrence: IT)
  Receive Date: 20120913
  Receipt Date: 20120913
  Transmission Date: 20130627
  Serious: Yes (Hospitalization)
  Sender: FDA-Public Use
  Company Number: IT-BAYER-2012-094887

PATIENT
  Age: 54 Year
  Sex: Male

DRUGS (2)
  1. CIPROXIN [Suspect]
     Indication: URINARY TRACT INFECTION
     Dosage: Daily dose 1500 mg
     Route: 048
     Dates: start: 20120902, end: 20120903
  2. SERENOA REPENS EXTRACT [Concomitant]
     Indication: PROSTATIC DISORDER
     Dosage: Daily dose 200 mg
     Route: 048
     Dates: start: 20120902, end: 20120912

REACTIONS (8)
  - Malaise [Recovered/Resolved]
  - Choking sensation [Recovered/Resolved]
  - Dyspnoea [Recovered/Resolved]
  - Hyperhidrosis [Recovered/Resolved]
  - Pallor [Recovered/Resolved]
  - Tachycardia [Recovered/Resolved]
  - Tremor [Recovered/Resolved]
  - Drug hypersensitivity [Recovered/Resolved]
